FAERS Safety Report 5715305-1 (Version None)
Quarter: 2008Q2

REPORT INFORMATION
  Report Type: 
  Country: None (occurrence: None)
  Receive Date: 20080423
  Receipt Date: 20080415
  Transmission Date: 20081010
  Serious: Yes (Other)
  Sender: FDA-Public Use
  Company Number: US-GENENTECH-259502

PATIENT
  Sex: Female

DRUGS (3)
  1. AVASTIN [Suspect]
     Indication: ANAPLASTIC ASTROCYTOMA
     Dosage: UNK, Q2W
     Route: 065
     Dates: start: 20070901
  2. CPT-11 [Suspect]
     Indication: ANAPLASTIC ASTROCYTOMA
     Dosage: UNK, UNKNOWN
     Route: 065
     Dates: start: 20070901
  3. STEROIDS (UNK INGREDIENTS) [Concomitant]
     Indication: ANAPLASTIC ASTROCYTOMA
     Dates: start: 20070901

REACTIONS (2)
  - ANAL FISSURE [None]
  - BRAIN NEOPLASM [None]
